FAERS Safety Report 11598517 (Version 2)
Quarter: 2016Q2

REPORT INFORMATION
  Report Type: Spontaneous
  Country: US (occurrence: US)
  Receive Date: 20151006
  Receipt Date: 20160405
  Transmission Date: 20160815
  Serious: No
  Sender: FDA-Public Use
  Company Number: US-ROCHE-1596585

PATIENT
  Sex: Female

DRUGS (3)
  1. VITAMIN D3 [Concomitant]
     Active Substance: CHOLECALCIFEROL
  2. ERIVEDGE [Suspect]
     Active Substance: VISMODEGIB
     Indication: PRODUCT USED FOR UNKNOWN INDICATION
     Route: 048
     Dates: start: 20150425
  3. CLARITIN [Concomitant]
     Active Substance: LORATADINE

REACTIONS (6)
  - Dysgeusia [Unknown]
  - Drug dose omission [Unknown]
  - Ageusia [Unknown]
  - Malaise [Unknown]
  - Feeling abnormal [Unknown]
  - Alopecia [Unknown]
